FAERS Safety Report 7370764-6 (Version None)
Quarter: 2011Q1

REPORT INFORMATION
  Report Type: 
  Country: None (occurrence: None)
  Receive Date: 20110324
  Receipt Date: 20110310
  Transmission Date: 20110831
  Serious: Yes (Death, Congenital Anomaly)
  Sender: FDA-Public Use
  Company Number: TR-MYLANLABS-2011S1005373

PATIENT
  Sex: Female

DRUGS (2)
  1. VALPROIC ACID [Suspect]
     Route: 064
  2. VALPROIC ACID [Suspect]
     Indication: PETIT MAL EPILEPSY
     Route: 064

REACTIONS (7)
  - LIMB MALFORMATION [None]
  - RENAL DYSPLASIA [None]
  - RESPIRATORY DISTRESS [None]
  - HEART DISEASE CONGENITAL [None]
  - DRUG EXPOSURE DURING PREGNANCY [None]
  - FOETAL ANTICONVULSANT SYNDROME [None]
  - SKULL MALFORMATION [None]
